FAERS Safety Report 8258509-9 (Version None)
Quarter: 2012Q2

REPORT INFORMATION
  Report Type: 
  Country: None (occurrence: None)
  Receive Date: 20120404
  Receipt Date: 20120329
  Transmission Date: 20120825
  Serious: Yes (Hospitalization, Other)
  Sender: FDA-Public Use
  Company Number: DK-PFIZER INC-2012061766

PATIENT
  Age: 65 Year
  Sex: Male
  Weight: 80 kg

DRUGS (5)
  1. SIMVASTATIN [Concomitant]
     Indication: HYPERCHOLESTEROLAEMIA
  2. CLOPIDOGREL [Concomitant]
     Indication: THROMBOSIS PROPHYLAXIS
  3. CARVEDILOL [Concomitant]
     Indication: HYPERTENSION
  4. LOSARSTAD COMP [Concomitant]
     Indication: HYPERTENSION
     Dosage: 50 MG LOSARTAN/12,5 MG HYDROCHLORTHIAZID
  5. VARENICLINE TARTRATE [Suspect]
     Indication: SMOKING CESSATION THERAPY
     Dosage: UNK
     Route: 048
     Dates: start: 20110815, end: 20111020

REACTIONS (6)
  - HAEMATEMESIS [None]
  - RASH [None]
  - EPISTAXIS [None]
  - BLOOD URINE PRESENT [None]
  - HYPERSENSITIVITY [None]
  - BENIGN LUNG NEOPLASM [None]
